FAERS Safety Report 15414057 (Version 1)
Quarter: 2018Q3

REPORT INFORMATION
  Report Type: Report from Study
  Country: JP (occurrence: JP)
  Receive Date: 20180921
  Receipt Date: 20180921
  Transmission Date: 20181010
  Serious: Yes (Other)
  Sender: FDA-Public Use
  Company Number: JP-TEVA-2018-JP-956986

PATIENT
  Age: 9 Year
  Sex: Male

DRUGS (10)
  1. CYTARABINE. [Suspect]
     Active Substance: CYTARABINE
     Indication: ACUTE MYELOID LEUKAEMIA
     Dosage: 3 G/M2 X 2 PART OF HCEI CHEMOTHERAPY; ON DAYS 1?3; ADMINISTERED THROUGH CENTRAL VENOUS CATHETER
     Route: 042
  2. IDARUBICIN [Suspect]
     Active Substance: IDARUBICIN
     Indication: ACUTE MYELOID LEUKAEMIA
     Dosage: PART OF IDA?FLAG CHEMOTHERAPY; ON DAYS 2?4; ADMINISTERED THROUGH CENTRAL VENOUS CATHETER
     Route: 042
  3. ETOPOSIDE. [Suspect]
     Active Substance: ETOPOSIDE
     Indication: ACUTE MYELOID LEUKAEMIA
     Dosage: PART OF HCEI CHEMOTHERAPY; ON DAYS 1?5; ADMINISTERED THROUGH CENTRAL VENOUS CATHETER
     Route: 042
  4. CYTARABINE. [Suspect]
     Active Substance: CYTARABINE
     Indication: ACUTE MYELOID LEUKAEMIA
     Dosage: PART OF ECM CHEMOTHERAPY; ON DAYS 6?12; ADMINISTERED THROUGH CENTRAL VENOUS CATHETER
     Route: 042
  5. CYTARABINE. [Suspect]
     Active Substance: CYTARABINE
     Indication: ACUTE MYELOID LEUKAEMIA
     Dosage: 2 G/M2 PART OF IDA?FLAG CHEMOTHERAPY; ON DAYS 1?4; ADMINISTERED THROUGH CENTRAL VENOUS CATHETER
     Route: 042
  6. FLUDARABINE [Suspect]
     Active Substance: FLUDARABINE PHOSPHATE
     Indication: ACUTE MYELOID LEUKAEMIA
     Dosage: PART OF IDA?FLAG CHEMOTHERAPY; ON DAYS 1?4; ADMINISTERED THROUGH CENTRAL VENOUS CATHETER
     Route: 042
  7. IDARUBICIN [Suspect]
     Active Substance: IDARUBICIN
     Indication: ACUTE MYELOID LEUKAEMIA
     Dosage: PART OF HCEI CHEMOTHERAPY; ON DAYS 1; ADMINISTERED THROUGH CENTRAL VENOUS CATHETER
     Route: 042
  8. MITOXANTRONE [Suspect]
     Active Substance: MITOXANTRONE HYDROCHLORIDE
     Indication: ACUTE MYELOID LEUKAEMIA
     Dosage: PART OF ECM CHEMOTHERAPY; ON DAYS 6?10; ADMINISTERED THROUGH CENTRAL VENOUS CATHETER
     Route: 042
  9. ETOPOSIDE. [Suspect]
     Active Substance: ETOPOSIDE
     Indication: ACUTE MYELOID LEUKAEMIA
     Dosage: PART OF ECM CHEMOTHERAPY; ON DAYS 1?5; ADMINISTERED THROUGH CENTRAL VENOUS CATHETER
     Route: 042
  10. VORICONAZOLE. [Concomitant]
     Active Substance: VORICONAZOLE
     Indication: PROPHYLAXIS
     Route: 048

REACTIONS (4)
  - Mucormycosis [Unknown]
  - Splenic infection fungal [Unknown]
  - Pneumonia [Unknown]
  - Cerebral fungal infection [Unknown]
